FAERS Safety Report 9244977 (Version 4)
Quarter: 2013Q3

REPORT INFORMATION
  Report Type: Report from Study
  Country: US (occurrence: US)
  Receive Date: 20130422
  Receipt Date: 20130923
  Transmission Date: 20140515
  Serious: Yes (Hospitalization, Other)
  Sender: FDA-Public Use
  Company Number: PHEH2013US005403

PATIENT
  Age: 59 Year
  Sex: Male
  Weight: 69 kg

DRUGS (17)
  1. SANDOSTATIN LAR DEPOT [Suspect]
     Indication: CARCINOID TUMOUR
     Dosage: 60 MG, MONTHLY
     Route: 030
     Dates: start: 20100701
  2. SANDOSTATIN LAR DEPOT [Suspect]
     Dosage: 60 MG, EVERY 28 DAYS
     Route: 030
  3. SANDOSTATIN LAR DEPOT [Suspect]
     Dosage: 60 MG, EVERY 4 WEEKS
  4. SANDOSTATIN [Suspect]
     Dosage: 100 UG/ML, QD
     Dates: start: 20111031
  5. SANDOSTATIN [Suspect]
     Dosage: 100 UG/ML, TID
     Route: 058
     Dates: start: 20121008
  6. PREDNISONE [Concomitant]
     Dosage: 1 DF, BID
     Route: 048
     Dates: start: 20120910
  7. LOPRESSOR [Concomitant]
     Dosage: 1 DF, QD
     Route: 048
     Dates: start: 20120910
  8. NORVASC [Concomitant]
     Dosage: 1 DF, QD
     Route: 048
     Dates: start: 20120910
  9. POTASSIUM CHLORIDE [Concomitant]
     Dosage: 20 MEQ, QD
     Route: 048
     Dates: start: 20120910
  10. PROTONIX [Concomitant]
     Dosage: 1 DF, QD
     Route: 048
     Dates: start: 20121105
  11. PROTONIX [Concomitant]
     Dosage: 1 DF, QD
     Route: 048
     Dates: start: 20130104
  12. ASPIRIN [Concomitant]
     Dosage: 1 DF, QD
     Route: 048
     Dates: start: 20111031
  13. CELEBREX [Concomitant]
     Dosage: 1 DF, QD
     Route: 048
     Dates: start: 20111031
  14. OXYCODONE [Concomitant]
     Dosage: 1 DF, Q4H- Q6H
     Route: 048
     Dates: start: 20111031
  15. CYANOCOBALAMIN [Concomitant]
     Dosage: 1000 UG/ML, QW
     Route: 030
     Dates: start: 20111031
  16. LOPERAMIDE [Concomitant]
     Dosage: 1 DF, QD
     Route: 048
     Dates: start: 20111031
  17. AMOXICILLIN [Concomitant]
     Dosage: 1 DF, QID
     Route: 048
     Dates: start: 20111031

REACTIONS (10)
  - Costochondritis [Unknown]
  - Chest discomfort [Unknown]
  - Disease progression [Unknown]
  - Injection site pain [Recovered/Resolved]
  - Needle issue [Unknown]
  - Flushing [Unknown]
  - Muscle spasms [Unknown]
  - Fatigue [Unknown]
  - Diarrhoea [Unknown]
  - Abdominal discomfort [Unknown]
